FAERS Safety Report 9725912 (Version 2)
Quarter: 2013Q4

REPORT INFORMATION
  Report Type: Spontaneous
  Country: US (occurrence: US)
  Receive Date: 20131203
  Receipt Date: 20131218
  Transmission Date: 20140711
  Serious: No
  Sender: FDA-Public Use
  Company Number: US-PFIZER INC-2013341290

PATIENT
  Age: 87 Year
  Sex: Male
  Weight: 95.24 kg

DRUGS (1)
  1. ADVIL [Suspect]
     Indication: ARTHRITIS
     Dosage: UNK, THREE TIMES A DAY

REACTIONS (1)
  - Diarrhoea [Unknown]
